FAERS Safety Report 8361493-0 (Version None)
Quarter: 2012Q2

REPORT INFORMATION
  Report Type: 
  Country: None (occurrence: None)
  Receive Date: 20120515
  Receipt Date: 20120511
  Transmission Date: 20120825
  Serious: Yes (Hospitalization)
  Sender: FDA-Public Use
  Company Number: US-BAYER-2012-046813

PATIENT
  Age: 50 Year
  Sex: Male

DRUGS (10)
  1. LISINOPRIL [Concomitant]
     Dosage: 40 MG, UNK
  2. GENERLAC [Concomitant]
     Dosage: 10MG/15ML
  3. FUROSEMIDE [Concomitant]
     Dosage: 40 MG, UNK
  4. NEXAVAR [Suspect]
     Dosage: 400 MG ONCE DAILY
     Dates: end: 20120401
  5. ONDANSETRON [Concomitant]
  6. OXYCODONE HCL [Concomitant]
     Dosage: 20 MG, UNK
  7. GLIPIZIDE [Concomitant]
     Dosage: 5 MG, UNK
  8. NEXAVAR [Suspect]
     Indication: HEPATIC NEOPLASM MALIGNANT
     Dosage: 400 MG TWICE DAILY
     Route: 048
     Dates: start: 20111201
  9. HYDRALAZINE HCL [Concomitant]
     Dosage: 50 MG, UNK
  10. ONDANSETRON [Concomitant]
     Dosage: 4 MG, UNK

REACTIONS (4)
  - BLISTER [None]
  - LIP BLISTER [None]
  - AMMONIA INCREASED [None]
  - TONGUE BLISTERING [None]
